FAERS Safety Report 4706319-9 (Version None)
Quarter: 2005Q2

REPORT INFORMATION
  Report Type: 
  Country: None (occurrence: None)
  Receive Date: 20050629
  Receipt Date: 20050413
  Transmission Date: 20051028
  Serious: No
  Sender: FDA-Public Use
  Company Number: 05P-163-0297241-00

PATIENT
  Sex: Female
  Weight: 59.8748 kg

DRUGS (7)
  1. HUMIRA [Suspect]
     Indication: RHEUMATOID ARTHRITIS
     Dosage: 40 MG, 1 IN 2 WK, SUBUCTANEOUS
     Route: 058
     Dates: start: 20050406
  2. SULFASALAZINE [Concomitant]
  3. PREDNISONE TAB [Concomitant]
  4. CANDESARTAN CILEXETIL [Concomitant]
  5. CLONIDINE [Concomitant]
  6. ATENOLOL [Concomitant]
  7. RISEDRONATE SODIUM [Concomitant]

REACTIONS (1)
  - CHEST PAIN [None]
